FAERS Safety Report 8356442 (Version 11)
Quarter: 2014Q2

REPORT INFORMATION
  Report Type: Spontaneous
  Country: US (occurrence: US)
  Receive Date: 20120126
  Receipt Date: 20140409
  Transmission Date: 20141212
  Serious: Yes (Death, Hospitalization, Other)
  Sender: FDA-Public Use
  Company Number: US-JNJFOC-20120109918

PATIENT
  Sex: Female

DRUGS (6)
  1. TYLENOL EXTRA STRENGTH [Suspect]
     Route: 065
  2. TYLENOL EXTRA STRENGTH [Suspect]
     Indication: PAIN
     Route: 065
  3. ALCOHOL [Suspect]
     Indication: PRODUCT USED FOR UNKNOWN INDICATION
     Route: 065
  4. ROCEPHIN [Concomitant]
     Indication: PRODUCT USED FOR UNKNOWN INDICATION
     Route: 065
  5. MUCOMYST (ACETYLCYSTEINE) [Concomitant]
     Indication: PRODUCT USED FOR UNKNOWN INDICATION
     Route: 065
  6. NORMAL SALINE [Concomitant]
     Indication: PRODUCT USED FOR UNKNOWN INDICATION
     Route: 065

REACTIONS (12)
  - Multi-organ failure [Fatal]
  - Acute hepatic failure [Fatal]
  - Renal injury [Fatal]
  - Respiratory failure [Fatal]
  - Encephalopathy [Fatal]
  - Disseminated intravascular coagulation [Fatal]
  - Generalised oedema [Fatal]
  - Supraventricular tachycardia [Unknown]
  - Hypertension [Unknown]
  - Hypotension [Unknown]
  - Overdose [Unknown]
  - Toxicity to various agents [Unknown]
